FAERS Safety Report 7230712-6 (Version None)
Quarter: 2011Q1

REPORT INFORMATION
  Report Type: 
  Country: None (occurrence: None)
  Receive Date: 20110118
  Receipt Date: 20110110
  Transmission Date: 20110831
  Serious: Yes (Other)
  Sender: FDA-Public Use
  Company Number: US-PFIZER INC-US-WYE-H08952509

PATIENT
  Sex: Female
  Weight: 56.689 kg

DRUGS (15)
  1. EFFEXOR XR [Suspect]
     Indication: GRIEF REACTION
     Dosage: 75 MG, 1X/DAY
     Route: 048
     Dates: start: 20090101, end: 20090101
  2. EFFEXOR XR [Suspect]
     Dosage: 187.5 MG, 1X/DAY
     Route: 048
     Dates: end: 20040101
  3. SYNTHROID [Concomitant]
     Indication: THYROID DISORDER
     Dosage: 150 UG, 1X/DAY
     Route: 048
  4. FIORICET W/ CODEINE [Concomitant]
  5. EFFEXOR XR [Suspect]
     Indication: DEPRESSION
     Dosage: DOSE INCREASED - UNKNOWN DOSE
     Route: 048
     Dates: start: 20040101
  6. EFFEXOR XR [Suspect]
     Dosage: ALTERNATED 150MG DAILY WITH 187.5MG DAILY
     Route: 048
     Dates: start: 20090301, end: 20090101
  7. EFFEXOR XR [Suspect]
     Dosage: 187.5 MG, 1X/DAY
     Route: 048
     Dates: end: 20090301
  8. IMITREX [Concomitant]
  9. EFFEXOR XR [Suspect]
     Dosage: 37.5 MG, 1X/DAY
     Route: 048
     Dates: start: 20090101
  10. PRISTIQ [Suspect]
     Indication: DEPRESSION
     Dosage: 50 MG DAILY
     Route: 048
     Dates: start: 20091013
  11. PRISTIQ [Suspect]
     Dosage: 50 MG DAILY
  12. FORTEO [Concomitant]
     Indication: OSTEOPOROSIS
     Dosage: UNK
     Route: 058
  13. EFFEXOR XR [Suspect]
     Dosage: 187.5 MG, 1X/DAY
     Route: 048
     Dates: start: 20090101, end: 20090101
  14. PRISTIQ [Suspect]
     Dosage: 100 MG DAILY
  15. NABILONE [Concomitant]
     Indication: MIGRAINE
     Dosage: 14 MG, 1X/DAY
     Route: 048

REACTIONS (14)
  - DRUG EFFECT DECREASED [None]
  - FALL [None]
  - WEIGHT DECREASED [None]
  - DRUG INEFFECTIVE [None]
  - NAUSEA [None]
  - AGITATION [None]
  - EYE PAIN [None]
  - HYPOAESTHESIA [None]
  - CRYING [None]
  - INFLUENZA LIKE ILLNESS [None]
  - BONE DISORDER [None]
  - INTRAOCULAR PRESSURE INCREASED [None]
  - DRUG WITHDRAWAL SYNDROME [None]
  - BONE PAIN [None]
